FAERS Safety Report 10224936 (Version 1)
Quarter: 2014Q2

REPORT INFORMATION
  Report Type: Spontaneous
  Country: US (occurrence: US)
  Receive Date: 20140609
  Receipt Date: 20140609
  Transmission Date: 20141212
  Serious: Yes (Other)
  Sender: FDA-Public Use
  Company Number: US-BRISTOL-MYERS SQUIBB COMPANY-20965208

PATIENT
  Age: 35 Year
  Sex: Female

DRUGS (3)
  1. ABILIFY [Suspect]
     Dosage: DISCONTINUED FOR 2WEEKS;RESTARTED SHORTLY AFTER
     Route: 048
     Dates: start: 201401
  2. ABILIFY MAINTENA INJECTION [Suspect]
     Indication: SCHIZOPHRENIA
     Dosage: QM
     Route: 030
     Dates: start: 201401
  3. ZOLOFT [Concomitant]

REACTIONS (4)
  - Delusion [Unknown]
  - Lethargy [Unknown]
  - Weight increased [Unknown]
  - Off label use [Unknown]
